FAERS Safety Report 12706162 (Version 2)
Quarter: 2016Q3

REPORT INFORMATION
  Report Type: Spontaneous
  Country: US (occurrence: US)
  Receive Date: 20160901
  Receipt Date: 20160901
  Transmission Date: 20161109
  Serious: No
  Sender: FDA-Public Use
  Company Number: US-JAZZ-2016-US-008101

PATIENT
  Age: 30 Year
  Sex: Female

DRUGS (19)
  1. ETODOLAC ER [Concomitant]
     Active Substance: ETODOLAC
  2. SINGULAIR [Concomitant]
     Active Substance: MONTELUKAST SODIUM
  3. MULTIVITAMIN [Concomitant]
     Active Substance: VITAMINS
  4. PROBIOTIC [Concomitant]
     Active Substance: PROBIOTICS NOS
  5. XYREM [Suspect]
     Active Substance: SODIUM OXYBATE
     Indication: NARCOLEPSY
     Dosage: 2.5 G, BID
     Route: 048
     Dates: start: 201510, end: 201510
  6. TYLENOL EXTRA STRENGTH [Concomitant]
     Active Substance: ACETAMINOPHEN
  7. BIOTIN [Concomitant]
     Active Substance: BIOTIN
  8. ASPIRIN EC [Concomitant]
     Active Substance: ASPIRIN
  9. XYREM [Suspect]
     Active Substance: SODIUM OXYBATE
     Dosage: DOSE ADJUSTMENTS
     Route: 048
  10. XYREM [Suspect]
     Active Substance: SODIUM OXYBATE
     Dosage: 4.5 G, BID
     Route: 048
     Dates: start: 201510
  11. CYCLOBENZAPRINE [Concomitant]
     Active Substance: CYCLOBENZAPRINE
  12. RITALIN LA [Concomitant]
     Active Substance: METHYLPHENIDATE HYDROCHLORIDE
  13. LOVENOX [Concomitant]
     Active Substance: ENOXAPARIN SODIUM
  14. TYLENOL WITH CODEINE [Concomitant]
     Active Substance: ACETAMINOPHEN\CODEINE PHOSPHATE
  15. PROVIGIL [Concomitant]
     Active Substance: MODAFINIL
  16. PRADAXA [Concomitant]
     Active Substance: DABIGATRAN ETEXILATE MESYLATE
  17. IBUPROFEN. [Concomitant]
     Active Substance: IBUPROFEN
  18. ADVAIR HFA [Concomitant]
     Active Substance: FLUTICASONE PROPIONATE\SALMETEROL XINAFOATE
  19. PROAIR HFA [Concomitant]
     Active Substance: ALBUTEROL SULFATE

REACTIONS (5)
  - Vitamin D deficiency [Unknown]
  - Patellofemoral pain syndrome [Unknown]
  - Muscle strain [Unknown]
  - Bursitis [Unknown]
  - Pain [Unknown]

NARRATIVE: CASE EVENT DATE: 20160111
